FAERS Safety Report 10681956 (Version 1)
Quarter: 2014Q4

REPORT INFORMATION
  Report Type: Spontaneous
  Country: US (occurrence: None)
  Receive Date: 20141229
  Receipt Date: 20141229
  Transmission Date: 20150529
  Serious: Yes (Hospitalization)
  Sender: FDA-Public Use
  Company Number: None

PATIENT
  Age: 44 Year
  Sex: Female
  Weight: 90.72 kg

DRUGS (1)
  1. LATUDA [Suspect]
     Active Substance: LURASIDONE HYDROCHLORIDE
     Indication: BIPOLAR DISORDER
     Dosage: TAKEN BY MOUTH
     Dates: start: 20141209, end: 20141227

REACTIONS (5)
  - Agitation [None]
  - Dyspnoea [None]
  - Irritability [None]
  - Angina pectoris [None]
  - Self-injurious ideation [None]

NARRATIVE: CASE EVENT DATE: 20141227
